FAERS Safety Report 7474647-2 (Version None)
Quarter: 2011Q2

REPORT INFORMATION
  Report Type: 
  Country: None (occurrence: None)
  Receive Date: 20110512
  Receipt Date: 20110427
  Transmission Date: 20111010
  Serious: Yes (Other)
  Sender: FDA-Public Use
  Company Number: SE-JNJFOC-20110411636

PATIENT
  Sex: Female

DRUGS (1)
  1. PROPULSID [Suspect]
     Indication: CONSTIPATION
     Route: 065

REACTIONS (7)
  - FORMICATION [None]
  - OFF LABEL USE [None]
  - INTUSSUSCEPTION [None]
  - PALPITATIONS [None]
  - BLOOD PRESSURE DECREASED [None]
  - DIZZINESS [None]
  - RECTAL PROLAPSE [None]
